FAERS Safety Report 6636311-9 (Version None)
Quarter: 2010Q1

REPORT INFORMATION
  Report Type: 
  Country: None (occurrence: None)
  Receive Date: 20100226
  Receipt Date: 20090306
  Transmission Date: 20100710
  Serious: Yes (Hospitalization)
  Sender: FDA-Public Use
  Company Number: WAES 0903USA01520

PATIENT
  Sex: Male

DRUGS (3)
  1. PRINIVIL [Suspect]
     Dosage: PO
     Route: 048
     Dates: end: 20080601
  2. ATENOLOL [Suspect]
     Dates: end: 20080601
  3. TERAZOSIN HYDROCHLORIDE [Suspect]
     Indication: BENIGN PROSTATIC HYPERPLASIA
     Dates: end: 20080601

REACTIONS (1)
  - SYNCOPE [None]
